FAERS Safety Report 5731733-2 (Version None)
Quarter: 2008Q2

REPORT INFORMATION
  Report Type: 
  Country: None (occurrence: None)
  Receive Date: 20080506
  Receipt Date: 20080506
  Transmission Date: 20081010
  Serious: Yes (Hospitalization)
  Sender: FDA-Public Use
  Company Number: None

PATIENT
  Sex: Female
  Weight: 38.1022 kg

DRUGS (2)
  1. PROMETHAZINE [Suspect]
     Indication: NAUSEA
     Dosage: 12.5 MG Q4-6HPRN IV BOLUS
     Route: 040
     Dates: start: 20080421, end: 20080501
  2. PROMETHAZINE [Suspect]
     Indication: VOMITING
     Dosage: 12.5 MG Q4-6HPRN IV BOLUS
     Route: 040
     Dates: start: 20080421, end: 20080501

REACTIONS (1)
  - NEUROLEPTIC MALIGNANT SYNDROME [None]
